FAERS Safety Report 19330954 (Version 4)
Quarter: 2021Q2

REPORT INFORMATION
  Report Type: Report from Study
  Country: NL (occurrence: NL)
  Receive Date: 20210528
  Receipt Date: 20210618
  Transmission Date: 20210717
  Serious: Yes (Hospitalization)
  Sender: FDA-Public Use
  Company Number: NL-REGENERON PHARMACEUTICALS, INC.-2021-54766

PATIENT

DRUGS (13)
  1. OMEPRAZOL                          /00661201/ [Concomitant]
     Active Substance: OMEPRAZOLE
     Indication: PROPHYLAXIS
     Dosage: TOTAL DAILY DOSE: 40 MG
     Route: 048
     Dates: start: 20210129
  2. PARACETAMOL [Concomitant]
     Active Substance: ACETAMINOPHEN
     Indication: PRODUCT USED FOR UNKNOWN INDICATION
     Dosage: TOTAL DAILY DOSE: 4000 MG
     Route: 048
     Dates: start: 20201105
  3. FLUTICASON [Concomitant]
     Active Substance: FLUTICASONE
     Indication: PRODUCT USED FOR UNKNOWN INDICATION
     Dosage: TOTAL DAILY DOSE: 2 APPLICATION UNIT
     Route: 061
     Dates: start: 20210318
  4. COTRIMOXAZOL [Concomitant]
     Active Substance: SULFAMETHOXAZOLE\TRIMETHOPRIM
     Indication: PRODUCT USED FOR UNKNOWN INDICATION
     Dosage: TOTAL DAILY DOSE: 1920 MG
     Route: 048
     Dates: start: 20210420
  5. SAR439459 [Suspect]
     Active Substance: SAR-439459
     Dosage: UNK, Q3W
     Route: 042
     Dates: start: 20210203, end: 20210203
  6. CLEMASTINE [Concomitant]
     Active Substance: CLEMASTINE
     Indication: PRODUCT USED FOR UNKNOWN INDICATION
     Dosage: TOTAL DAILY DOSE: 1 MG
     Route: 048
     Dates: start: 20210408
  7. PREDNISOLONE. [Concomitant]
     Active Substance: PREDNISOLONE
     Indication: PROPHYLAXIS
     Dosage: TOTAL DAILY DOSE: 30 MG
     Route: 048
     Dates: start: 20201103
  8. SAR439459 [Suspect]
     Active Substance: SAR-439459
     Indication: BLADDER CANCER
     Dosage: UNK, Q3W
     Route: 042
  9. HYDROXYZINE [Concomitant]
     Active Substance: HYDROXYZINE HYDROCHLORIDE
     Indication: PRODUCT USED FOR UNKNOWN INDICATION
     Dosage: TOTAL DAILY DOSE: 25 MG
     Route: 048
     Dates: start: 20210424
  10. CEMIPLIMAB [Suspect]
     Active Substance: CEMIPLIMAB
     Indication: BLADDER CANCER
     Dosage: 3 MG/KG, Q3W
     Route: 042
  11. CEMIPLIMAB [Suspect]
     Active Substance: CEMIPLIMAB
     Dosage: 3 MG/KG, Q3W
     Route: 042
     Dates: start: 20210203, end: 20210203
  12. MACROGOL [Concomitant]
     Active Substance: POLYETHYLENE GLYCOLS
     Indication: PRODUCT USED FOR UNKNOWN INDICATION
     Dosage: TOTAL DAILY DOSE: 1 SACHET
     Route: 048
     Dates: start: 20201105
  13. VASELINE CETOMACROGOL CREAM [Concomitant]
     Indication: PRODUCT USED FOR UNKNOWN INDICATION
     Dosage: TOTAL DAILY DOSE: 1 APPLICATION UNIT
     Route: 061
     Dates: start: 20210225

REACTIONS (2)
  - Squamous cell carcinoma [Not Recovered/Not Resolved]
  - Adrenal insufficiency [Recovered/Resolved]

NARRATIVE: CASE EVENT DATE: 20210519
